APPROVED DRUG PRODUCT: PREDNISOLONE TEBUTATE
Active Ingredient: PREDNISOLONE TEBUTATE
Strength: 20MG/ML
Dosage Form/Route: INJECTABLE;INJECTION
Application: A083362 | Product #001
Applicant: WATSON LABORATORIES INC
Approved: Feb 17, 1984 | RLD: No | RS: No | Type: DISCN